FAERS Safety Report 11519345 (Version 1)
Quarter: 2015Q3

REPORT INFORMATION
  Report Type: Spontaneous
  Country: IT (occurrence: IT)
  Receive Date: 20150918
  Receipt Date: 20150918
  Transmission Date: 20151125
  Serious: Yes (Hospitalization, Other)
  Sender: FDA-Public Use
  Company Number: IT-BRISTOL-MYERS SQUIBB COMPANY-BMS-2015-061356

PATIENT
  Age: 77 Year
  Sex: Male

DRUGS (6)
  1. COUMADIN [Suspect]
     Active Substance: WARFARIN SODIUM
     Indication: ATRIAL FIBRILLATION
     Dosage: 5 MG, QD
     Route: 048
     Dates: start: 20140101
  2. TENORMIN [Concomitant]
     Active Substance: ATENOLOL
     Indication: PRODUCT USED FOR UNKNOWN INDICATION
     Dosage: 100 MG, UNK
     Route: 065
  3. DIURESIX                           /01036501/ [Concomitant]
     Indication: CHRONIC KIDNEY DISEASE
  4. DIURESIX                           /01036501/ [Concomitant]
     Indication: AORTIC VALVE REPLACEMENT
  5. DIURESIX                           /01036501/ [Concomitant]
     Indication: LIVER DISORDER
  6. DIURESIX                           /01036501/ [Concomitant]
     Indication: INFARCTION
     Dosage: 10 MG, UNK
     Route: 065

REACTIONS (3)
  - Aphasia [Recovered/Resolved]
  - Cerebral haemorrhage [Recovered/Resolved]
  - Disorientation [Recovered/Resolved]

NARRATIVE: CASE EVENT DATE: 20150220
